FAERS Safety Report 5657414-1 (Version None)
Quarter: 2008Q1

REPORT INFORMATION
  Report Type: 
  Country: None (occurrence: None)
  Receive Date: 20080310
  Receipt Date: 20080228
  Transmission Date: 20080703
  Serious: Yes (Other)
  Sender: FDA-Public Use
  Company Number: PHHY2008BR02388

PATIENT
  Age: 23 Year
  Sex: Female
  Weight: 46 kg

DRUGS (1)
  1. TRILEPTAL [Suspect]
     Indication: MEMORY IMPAIRMENT
     Dosage: 1/2 TAB/ DAY+ 1 TAB/NIGHT
     Route: 048
     Dates: start: 20080218

REACTIONS (4)
  - INFLUENZA [None]
  - OEDEMA MOUTH [None]
  - RASH MACULO-PAPULAR [None]
  - SKIN SWELLING [None]
